FAERS Safety Report 4490214-7 (Version None)
Quarter: 2004Q4

REPORT INFORMATION
  Report Type: 
  Country: None (occurrence: None)
  Receive Date: 20041027
  Receipt Date: 20041014
  Transmission Date: 20050328
  Serious: Yes (Hospitalization, Other)
  Sender: FDA-Public Use
  Company Number: 2004079258

PATIENT
  Age: 38 Year
  Sex: Male
  Weight: 90 kg

DRUGS (8)
  1. DOXAZOSIN MESYLATE [Suspect]
     Indication: HYPERTENSION
     Dosage: 4-10 MILLIGRAM (1 D), ORAL
     Route: 048
  2. PROPOFOL [Suspect]
     Indication: ANAESTHESIA
     Dosage: INTRAVENOUS
     Route: 042
     Dates: start: 20040101
  3. FENTANYL CITRATE [Suspect]
     Indication: ANAESTHESIA
     Dosage: INTRAVENOUS
     Route: 042
     Dates: start: 20040101
  4. VECURONIUM (VECURONIUM) [Suspect]
     Indication: ANAESTHESIA
     Dosage: INTRAVENOUS
     Route: 042
     Dates: start: 20040101
  5. SEVOFLURANE [Suspect]
     Indication: ANAESTHESIA
     Dosage: INHALATION
     Route: 055
     Dates: start: 20040101
  6. OXYGEN (OXYGEN) [Suspect]
     Indication: ILL-DEFINED DISORDER
     Dosage: INHALATION
     Route: 055
  7. ETILEFRINE HYDROCHLORIDE (ETILEFRINE HYDROCHLORIDE) [Concomitant]
  8. PHENYLEPHRINE (PHENYLEPHRINE) [Concomitant]

REACTIONS (3)
  - BLOOD PRESSURE SYSTOLIC DECREASED [None]
  - DRUG INEFFECTIVE [None]
  - ELECTROLYTE IMBALANCE [None]
